FAERS Safety Report 19569620 (Version 1)
Quarter: 2021Q3

REPORT INFORMATION
  Report Type: Report from Study
  Country: IE (occurrence: IE)
  Receive Date: 20210716
  Receipt Date: 20210716
  Transmission Date: 20211014
  Serious: Yes (Hospitalization)
  Sender: FDA-Public Use
  Company Number: IE-PFIZER INC-2021831868

PATIENT
  Weight: 33.1 kg

DRUGS (29)
  1. GENTAMICIN. [Concomitant]
     Active Substance: GENTAMICIN
     Dosage: 220 MG, 1X/DAY
     Dates: start: 20210625, end: 20210626
  2. TAZOCIN [Concomitant]
     Active Substance: PIPERACILLIN SODIUM\TAZOBACTAM SODIUM
     Indication: ANTIBIOTIC THERAPY
     Dosage: 3 G, 4X/DAY (EVERY 6 HOURS)
     Dates: start: 20210611, end: 20210621
  3. COTRIMOXAZOLE [Concomitant]
     Active Substance: SULFAMETHOXAZOLE\TRIMETHOPRIM
     Indication: ANTIBIOTIC THERAPY
     Dosage: 480 MG, 2X/DAY
     Dates: start: 20210612, end: 20210621
  4. NYSTATIN. [Concomitant]
     Active Substance: NYSTATIN
     Indication: ANTIFUNGAL PROPHYLAXIS
     Dosage: 1 ML, 4X/DAY (EVERY 6 HRS)
     Dates: start: 20210615, end: 20210623
  5. NYSTATIN. [Concomitant]
     Active Substance: NYSTATIN
     Dosage: 1 ML, 4X/DAY (EVERY 6 HRS)
     Dates: start: 20210625, end: 20210627
  6. AMILORIDE [Concomitant]
     Active Substance: AMILORIDE
     Indication: HYPERTENSION
     Dosage: 5 MG, 2X/DAY
  7. AMILORIDE [Concomitant]
     Active Substance: AMILORIDE
     Dosage: 5 MG, 2X/DAY
     Dates: start: 20210618, end: 20210620
  8. OMEPRAZOLE. [Concomitant]
     Active Substance: OMEPRAZOLE
     Indication: GASTROOESOPHAGEAL REFLUX DISEASE
     Dosage: 20 MG, 1X/DAY
     Dates: start: 20210621, end: 20210623
  9. LEVOMEPROMAZINE [Concomitant]
     Active Substance: LEVOMEPROMAZINE
     Indication: PSYCHOTIC DISORDER
     Dosage: 3 MG, 2X/DAY
     Dates: start: 20210617, end: 20210623
  10. HEPARIN SODIUM. [Concomitant]
     Active Substance: HEPARIN SODIUM
     Dosage: UNK
     Dates: start: 20210625, end: 20210627
  11. CHLORPHENAMINE [Concomitant]
     Active Substance: CHLORPHENIRAMINE MALEATE
     Indication: ANTIALLERGIC THERAPY
     Dosage: 5 MG (OTHER? 14, 15, 23RD JUN)
     Dates: start: 20210614, end: 20210623
  12. AMBISOME [Concomitant]
     Active Substance: AMPHOTERICIN B
     Indication: ANTIFUNGAL PROPHYLAXIS
     Dosage: 34 MG, 1X/DAY
     Dates: start: 20210611, end: 20210620
  13. COTRIMOXAZOLE [Concomitant]
     Active Substance: SULFAMETHOXAZOLE\TRIMETHOPRIM
     Dosage: 480 MG, 2X/DAY
     Dates: start: 20210626, end: 20210627
  14. OXYNORM [Concomitant]
     Active Substance: OXYCODONE HYDROCHLORIDE
     Indication: PAIN
     Dosage: 5 MG, 4X/DAY (EVERY 6 HRS)
     Dates: start: 20210617, end: 20210620
  15. OMEPRAZOLE. [Concomitant]
     Active Substance: OMEPRAZOLE
     Dosage: 20 MG, 1X/DAY
     Dates: start: 20210625, end: 20210627
  16. TAZOCIN [Concomitant]
     Active Substance: PIPERACILLIN SODIUM\TAZOBACTAM SODIUM
     Dosage: 2.8 G, 4X/DAY (EVERY 6 HOURS)
     Dates: start: 20210625, end: 20210627
  17. KIN MOUTHWASH [Concomitant]
     Indication: PERIODONTAL DISEASE
     Dosage: 5 ML, 2X/DAY
     Dates: start: 20210611, end: 20210623
  18. OXYNORM [Concomitant]
     Active Substance: OXYCODONE HYDROCHLORIDE
     Dosage: 5 MG, 3X/DAY
     Dates: start: 20210625, end: 20210627
  19. ESOMEPRAZOLE. [Concomitant]
     Active Substance: ESOMEPRAZOLE MAGNESIUM
     Indication: GASTROOESOPHAGEAL REFLUX DISEASE
     Dosage: 20 MG, 1X/DAY
     Dates: start: 20210615, end: 20210620
  20. PARACETAMOL [Concomitant]
     Active Substance: ACETAMINOPHEN
     Indication: PAIN
     Dosage: 470 MG, 3X/DAY
     Dates: start: 20210625, end: 20210625
  21. POSACONAZOLE [Concomitant]
     Active Substance: POSACONAZOLE
     Indication: ANTIFUNGAL PROPHYLAXIS
     Dosage: 260 MG, 2X/DAY
     Dates: start: 20210621, end: 20210623
  22. POSACONAZOLE [Concomitant]
     Active Substance: POSACONAZOLE
     Dosage: 260 MG, 2X/DAY
     Dates: start: 20210625, end: 20210627
  23. ONDANSETRON [Concomitant]
     Active Substance: ONDANSETRON
     Indication: ANTIEMETIC SUPPORTIVE CARE
     Dosage: 6 MG, 3X/DAY
     Dates: start: 20210611, end: 20210623
  24. OXYNORM [Concomitant]
     Active Substance: OXYCODONE HYDROCHLORIDE
     Dosage: 5 MG, 3X/DAY
     Dates: start: 20210620, end: 20210623
  25. BUSCOPAN [Concomitant]
     Active Substance: BUTYLSCOPOLAMINE BROMIDE
     Indication: ANTICHOLINERGIC SYNDROME
     Dosage: 10 MG, 3X/DAY
     Dates: start: 20210621, end: 20210621
  26. HEPARIN SODIUM. [Concomitant]
     Active Substance: HEPARIN SODIUM
     Indication: ANTICOAGULANT THERAPY
     Dosage: 2.5 ML, 4X/DAY
     Dates: start: 20210613, end: 20210623
  27. GEMTUZUMAB OZOGAMICIN [Suspect]
     Active Substance: GEMTUZUMAB OZOGAMICIN
     Indication: ACUTE MYELOID LEUKAEMIA
     Dosage: 3.5 MG, OTHER
     Route: 042
     Dates: start: 20210608, end: 20210614
  28. MITOXANTRONE HCL [Suspect]
     Active Substance: MITOXANTRONE HYDROCHLORIDE
     Indication: ACUTE MYELOID LEUKAEMIA
     Dosage: 14 MG/M2, 1X/DAY
     Route: 042
     Dates: start: 20210605, end: 20210608
  29. ONDANSETRON [Concomitant]
     Active Substance: ONDANSETRON
     Dosage: 6 MG, 3X/DAY
     Dates: start: 20210625, end: 20210627

REACTIONS (1)
  - Appendicitis [Not Recovered/Not Resolved]

NARRATIVE: CASE EVENT DATE: 20210702
